FAERS Safety Report 21707496 (Version 2)
Quarter: 2022Q4

REPORT INFORMATION
  Report Type: Spontaneous
  Country: US (occurrence: US)
  Receive Date: 20221209
  Receipt Date: 20221213
  Transmission Date: 20230112
  Serious: No
  Sender: FDA-Public Use
  Company Number: US-VIVUS, Inc.-2021V1000339

PATIENT
  Age: 67 Year
  Sex: Male
  Weight: 69.462 kg

DRUGS (2)
  1. PANCREAZE [Suspect]
     Active Substance: PANCRELIPASE AMYLASE\PANCRELIPASE LIPASE\PANCRELIPASE PROTEASE
     Indication: Pancreatectomy
     Dosage: 21000 UNITS/54700 UNITS/83900 UNITS 2 CAPSULES PER MEAL
     Route: 048
     Dates: start: 2000
  2. PANCREAZE [Suspect]
     Active Substance: PANCRELIPASE AMYLASE\PANCRELIPASE LIPASE\PANCRELIPASE PROTEASE
     Dosage: 21000 UNITS/54700 UNITS/83900 UNITS 4 CAPSULES PER MEAL
     Route: 048
     Dates: start: 2006

REACTIONS (2)
  - Blood glucose increased [Not Recovered/Not Resolved]
  - Expired product administered [Not Recovered/Not Resolved]

NARRATIVE: CASE EVENT DATE: 20211209
